FAERS Safety Report 24192936 (Version 1)
Quarter: 2024Q3

REPORT INFORMATION
  Report Type: Report from Study
  Country: US (occurrence: None)
  Receive Date: 20240809
  Receipt Date: 20240809
  Transmission Date: 20241017
  Serious: Yes (Hospitalization)
  Sender: ASTRAZENECA
  Company Number: 2024A177917

PATIENT
  Sex: Female
  Weight: 102.1 kg

DRUGS (1)
  1. FASENRA [Suspect]
     Active Substance: BENRALIZUMAB
     Indication: Asthma
     Dosage: FOLLOWED BY EVERY 8 WEEKS THEREAFTER
     Route: 058
     Dates: start: 20240703

REACTIONS (1)
  - Heart rate increased [Unknown]
